FAERS Safety Report 4726244-7 (Version None)
Quarter: 2005Q3

REPORT INFORMATION
  Report Type: 
  Country: None (occurrence: None)
  Receive Date: 20050725
  Receipt Date: 20050718
  Transmission Date: 20060218
  Serious: Yes (Hospitalization, Other)
  Sender: FDA-Public Use
  Company Number: 26367

PATIENT
  Age: 73 Year
  Sex: Male

DRUGS (6)
  1. ALDARA [Suspect]
     Indication: ACTINIC KERATOSIS
     Dosage: 2 IN 1 WEEK (S)  TOPICAL
     Route: 061
     Dates: start: 20050114, end: 20050308
  2. LIPITOR [Suspect]
     Dosage: (10 MG, 1 IN 1 DAY (S) ) ORAL
     Route: 048
     Dates: start: 20030901
  3. MULTI-VITAMINS [Concomitant]
  4. ASPIRIN [Concomitant]
  5. HALIBUT OIL [Concomitant]
  6. VITAMIN B COMPLEX CAP [Concomitant]

REACTIONS (15)
  - ABNORMAL BEHAVIOUR [None]
  - ANAEMIA [None]
  - APPLICATION SITE REACTION [None]
  - ARTHRALGIA [None]
  - DIZZINESS [None]
  - DYSKINESIA [None]
  - FATIGUE [None]
  - HYPOMANIA [None]
  - MENTAL DISORDER [None]
  - MYALGIA [None]
  - PSYCHOMOTOR HYPERACTIVITY [None]
  - SCAB [None]
  - SOMNOLENCE [None]
  - TOURETTE'S DISORDER [None]
  - VERTIGO [None]
